FAERS Safety Report 4401777-1 (Version None)
Quarter: 2004Q3

REPORT INFORMATION
  Report Type: 
  Country: None (occurrence: None)
  Receive Date: 20040719
  Receipt Date: 20040714
  Transmission Date: 20050211
  Serious: Yes (Other)
  Sender: FDA-Public Use
  Company Number: US-BRISTOL-MYERS SQUIBB COMPANY-12639936

PATIENT
  Sex: Female

DRUGS (4)
  1. STADOL [Suspect]
     Indication: PREMATURE LABOUR
     Route: 064
     Dates: start: 20040406, end: 20040406
  2. VICODIN [Concomitant]
     Route: 064
     Dates: start: 20040207, end: 20040210
  3. AMBIEN [Concomitant]
     Dosage: THIRD DAY: 31-MAR-2004
     Route: 064
     Dates: start: 20040327, end: 20040401
  4. AMPICILLIN [Concomitant]
     Route: 064

REACTIONS (2)
  - DRUG SCREEN POSITIVE [None]
  - PREGNANCY [None]
